FAERS Safety Report 21583346 (Version 1)
Quarter: 2022Q4

REPORT INFORMATION
  Report Type: Spontaneous
  Country: US (occurrence: US)
  Receive Date: 20221111
  Receipt Date: 20221111
  Transmission Date: 20230113
  Serious: No
  Sender: FDA-Public Use
  Company Number: US-ORGANON-O2211USA000942

PATIENT
  Age: 32 Year
  Sex: Female
  Weight: 80.726 kg

DRUGS (2)
  1. NEXPLANON [Suspect]
     Active Substance: ETONOGESTREL
     Dosage: 1 DOSAGE FORM OF 68 MILLIGRAM INTO LEFT ARM
     Route: 059
     Dates: start: 20191023, end: 20221026
  2. NEXPLANON [Suspect]
     Active Substance: ETONOGESTREL
     Dosage: 1 ROD INTO RIGHT ARM
     Route: 059
     Dates: start: 20221026

REACTIONS (4)
  - Device breakage [Recovered/Resolved]
  - Device placement issue [Unknown]
  - Incorrect product administration duration [Unknown]
  - No adverse event [Unknown]

NARRATIVE: CASE EVENT DATE: 20221023
